FAERS Safety Report 7450965-9 (Version None)
Quarter: 2011Q2

REPORT INFORMATION
  Report Type: 
  Country: None (occurrence: None)
  Receive Date: 20110429
  Receipt Date: 20110429
  Transmission Date: 20111010
  Serious: Yes (Hospitalization)
  Sender: FDA-Public Use
  Company Number: None

PATIENT
  Age: 14 Year
  Sex: Female
  Weight: 49.4421 kg

DRUGS (1)
  1. DOXYCYCLINE HYCLATE [Suspect]
     Indication: ACNE
     Dosage: ONE CAPSULE TWICE A DAY PO
     Route: 048
     Dates: start: 20110409, end: 20110421

REACTIONS (5)
  - FOREIGN BODY [None]
  - CRYING [None]
  - ULCER [None]
  - EATING DISORDER [None]
  - CHEST PAIN [None]
